FAERS Safety Report 24171057 (Version 1)
Quarter: 2024Q3

REPORT INFORMATION
  Report Type: Spontaneous
  Country: US (occurrence: US)
  Receive Date: 20240805
  Receipt Date: 20240805
  Transmission Date: 20241016
  Serious: Yes (Other)
  Sender: TEVA
  Company Number: US-TEVA-VS-3228922

PATIENT
  Sex: Male

DRUGS (22)
  1. PENICILLIN [Suspect]
     Active Substance: PENICILLIN
     Indication: Product used for unknown indication
     Route: 065
  2. PROVENTIL HFA [Concomitant]
     Active Substance: ALBUTEROL SULFATE
  3. VENTOLIN HFA [Concomitant]
     Active Substance: ALBUTEROL SULFATE
  4. PROAIR HFA [Concomitant]
     Active Substance: ALBUTEROL SULFATE
  5. ASPIRIN [Concomitant]
     Active Substance: ASPIRIN
  6. LOTENSIN [Concomitant]
     Active Substance: BENAZEPRIL HYDROCHLORIDE
  7. PLAVIX [Concomitant]
     Active Substance: CLOPIDOGREL BISULFATE
  8. VOLTAREN [Concomitant]
     Active Substance: DICLOFENAC SODIUM
  9. VIBRAMYCIN [Concomitant]
     Active Substance: DOXYCYCLINE
  10. MONODOX [Concomitant]
     Active Substance: DOXYCYCLINE
  11. JARDIANCE [Concomitant]
     Active Substance: EMPAGLIFLOZIN
  12. NEXIUM [Concomitant]
     Active Substance: ESOMEPRAZOLE MAGNESIUM
  13. ,Zetia [Concomitant]
  14. PEPCID [Concomitant]
     Active Substance: FAMOTIDINE
  15. LOPID [Concomitant]
     Active Substance: GEMFIBROZIL
  16. NORCO [Concomitant]
     Active Substance: ACETAMINOPHEN\HYDROCODONE BITARTRATE
  17. ATROVENT [Concomitant]
     Active Substance: IPRATROPIUM BROMIDE
  18. NIZORAL [Concomitant]
     Active Substance: KETOCONAZOLE
  19. GLUCOPHAGE XR [Concomitant]
     Active Substance: METFORMIN HYDROCHLORIDE
  20. NITROSTAT [Concomitant]
     Active Substance: NITROGLYCERIN
  21. CRESTOR [Concomitant]
     Active Substance: ROSUVASTATIN CALCIUM
  22. CIALIS [Concomitant]
     Active Substance: TADALAFIL

REACTIONS (1)
  - Anaphylactic reaction [Unknown]
